FAERS Safety Report 13603706 (Version 10)
Quarter: 2018Q2

REPORT INFORMATION
  Report Type: Report from Study
  Country: CA (occurrence: CA)
  Receive Date: 20170602
  Receipt Date: 20180413
  Transmission Date: 20180711
  Serious: Yes (Other)
  Sender: FDA-Public Use
  Company Number: CA-ROCHE-1638435

PATIENT
  Age: 70 Year
  Sex: Female

DRUGS (15)
  1. ACTEMRA [Suspect]
     Active Substance: TOCILIZUMAB
     Indication: RHEUMATOID ARTHRITIS
     Dosage: ON 17/JAN/2018 LAST INFUSION OF ACTEMRA WAS ADMINISTERED
     Route: 042
     Dates: start: 20150720, end: 201603
  2. SIMVASTATIN. [Concomitant]
     Active Substance: SIMVASTATIN
  3. ACTEMRA [Suspect]
     Active Substance: TOCILIZUMAB
     Route: 042
     Dates: start: 20160411, end: 2016
  4. OXYCOCET [Concomitant]
     Active Substance: ACETAMINOPHEN\OXYCODONE HYDROCHLORIDE
  5. ACTEMRA [Suspect]
     Active Substance: TOCILIZUMAB
     Route: 042
     Dates: start: 20170922, end: 20180117
  6. PLAVIX [Concomitant]
     Active Substance: CLOPIDOGREL BISULFATE
  7. SYNTHROID [Concomitant]
     Active Substance: LEVOTHYROXINE SODIUM
  8. TEMAZEPAM. [Concomitant]
     Active Substance: TEMAZEPAM
  9. PANTOPRAZOLE [Concomitant]
     Active Substance: PANTOPRAZOLE
  10. ACTEMRA [Suspect]
     Active Substance: TOCILIZUMAB
     Route: 042
     Dates: start: 20160120
  11. ACTEMRA [Suspect]
     Active Substance: TOCILIZUMAB
     Route: 042
     Dates: start: 20170525, end: 201706
  12. GABAPENTINE [Concomitant]
     Active Substance: GABAPENTIN
  13. MORPHINE [Concomitant]
     Active Substance: MORPHINE
  14. FISH OIL [Concomitant]
     Active Substance: FISH OIL
  15. RAMIPRIL. [Concomitant]
     Active Substance: RAMIPRIL

REACTIONS (28)
  - Chest pain [Unknown]
  - Injection site extravasation [Unknown]
  - Pain in extremity [Unknown]
  - Peripheral swelling [Unknown]
  - Foot deformity [Recovered/Resolved]
  - Medication error [Unknown]
  - Blood pressure systolic increased [Unknown]
  - Nasopharyngitis [Not Recovered/Not Resolved]
  - Cyst [Not Recovered/Not Resolved]
  - Ill-defined disorder [Not Recovered/Not Resolved]
  - Underdose [Unknown]
  - Complication associated with device [Not Recovered/Not Resolved]
  - Blood pressure increased [Unknown]
  - Joint abscess [Not Recovered/Not Resolved]
  - Ejection fraction decreased [Unknown]
  - Oxygen saturation decreased [Unknown]
  - Ill-defined disorder [Unknown]
  - Osteomyelitis [Not Recovered/Not Resolved]
  - Blood pressure systolic increased [Unknown]
  - Joint swelling [Unknown]
  - Arthralgia [Not Recovered/Not Resolved]
  - Rheumatoid arthritis [Not Recovered/Not Resolved]
  - Blood pressure increased [Unknown]
  - Pain in extremity [Unknown]
  - Postoperative wound infection [Unknown]
  - Thrombosis [Recovering/Resolving]
  - Injection site extravasation [Recovered/Resolved]
  - Fall [Unknown]

NARRATIVE: CASE EVENT DATE: 20150923
